FAERS Safety Report 9963965 (Version 3)
Quarter: 2014Q2

REPORT INFORMATION
  Report Type: Spontaneous
  Country: CA (occurrence: CA)
  Receive Date: 20140305
  Receipt Date: 20140604
  Transmission Date: 20141212
  Serious: Yes (Hospitalization)
  Sender: FDA-Public Use
  Company Number: PHHY2014CA023790

PATIENT
  Sex: Male

DRUGS (2)
  1. GENTAMICIN SANDOZ [Suspect]
     Indication: LOCAL SWELLING
     Route: 065
  2. PIPERACILLIN+TAZOBACTAM [Suspect]

REACTIONS (7)
  - Feeling abnormal [Recovered/Resolved]
  - Visual impairment [Recovered/Resolved]
  - Peripheral swelling [Recovered/Resolved]
  - Memory impairment [Recovered/Resolved]
  - Vertigo [Recovered/Resolved]
  - Renal impairment [Recovered/Resolved]
  - Hearing impaired [Recovered/Resolved]
